FAERS Safety Report 10627431 (Version 2)
Quarter: 2014Q4

REPORT INFORMATION
  Report Type: Other
  Country: IT (occurrence: IT)
  Receive Date: 20141205
  Receipt Date: 20141222
  Transmission Date: 20150529
  Serious: Yes (Other)
  Sender: FDA-Public Use
  Company Number: IT-SUN PHARMACEUTICAL INDUSTRIES LTD-2014SUN02733

PATIENT

DRUGS (11)
  1. OMEPRAZEN [Concomitant]
     Active Substance: OMEPRAZOLE
     Route: 048
     Dates: start: 20131118, end: 20141119
  2. GEMCITABINE [Suspect]
     Active Substance: GEMCITABINE\GEMCITABINE HYDROCHLORIDE
     Indication: NON-HODGKIN^S LYMPHOMA
     Route: 065
     Dates: start: 20140728, end: 20141119
  3. OXALIPLATIN. [Suspect]
     Active Substance: OXALIPLATIN
     Indication: NON-HODGKIN^S LYMPHOMA
     Dosage: 150 MG CYCLICAL
     Route: 042
     Dates: start: 20140728, end: 20141119
  4. MABTHERA [Suspect]
     Active Substance: RITUXIMAB
     Indication: NON-HODGKIN^S LYMPHOMA
     Dosage: 750 MG CYCLICAL
     Route: 042
     Dates: start: 20131125, end: 20141119
  5. TRIMETON 10 MG/1 ML [Concomitant]
     Indication: PREMEDICATION
     Dosage: 10 MILLIGRAMMI
     Route: 042
     Dates: start: 20140904, end: 20140904
  6. PARACETAMOLO KABI [Concomitant]
     Indication: PREMEDICATION
     Dosage: 100 MILLIGRAMMI
     Route: 042
     Dates: start: 20140904, end: 20140904
  7. RANITIDINE [Concomitant]
     Active Substance: RANITIDINE\RANITIDINE HYDROCHLORIDE
     Indication: PREMEDICATION
     Dosage: 50 MILLIGRAMMI
     Dates: start: 20140904, end: 20140904
  8. FLEBOCORTID RICHTER [Concomitant]
     Indication: PREMEDICATION
     Dosage: 100 MILLIGRAMMI
     Route: 042
     Dates: start: 20140904, end: 20140904
  9. FOSICOMBI 20 MG + 12.5 MG [Concomitant]
     Route: 048
     Dates: start: 20000101, end: 20141119
  10. GLUCOPHAGE [Concomitant]
     Active Substance: METFORMIN HYDROCHLORIDE
     Dosage: 850 MILLIGRAMMI
     Route: 048
     Dates: start: 20000101, end: 20141119
  11. PEGFILGRASTIM [Concomitant]
     Active Substance: PEGFILGRASTIM

REACTIONS (2)
  - Abdominal pain upper [Recovering/Resolving]
  - Vomiting [None]

NARRATIVE: CASE EVENT DATE: 20140908
